APPROVED DRUG PRODUCT: ISOETHARINE HYDROCHLORIDE
Active Ingredient: ISOETHARINE HYDROCHLORIDE
Strength: 0.125%
Dosage Form/Route: SOLUTION;INHALATION
Application: A087938 | Product #001
Applicant: ASTRAZENECA LP
Approved: Nov 15, 1982 | RLD: Yes | RS: No | Type: DISCN